FAERS Safety Report 9062781 (Version 1)
Quarter: 2013Q1

REPORT INFORMATION
  Report Type: Spontaneous
  Country: US (occurrence: US)
  Receive Date: 20130128
  Receipt Date: 20130128
  Transmission Date: 20140127
  Serious: Yes (Hospitalization, Other)
  Sender: FDA-Public Use
  Company Number: US-BAYER-2013-008889

PATIENT
  Age: 31 Year
  Sex: Female

DRUGS (8)
  1. YAZ [Suspect]
  2. LORTAB [Concomitant]
     Indication: ABDOMINAL PAIN
     Dosage: 5/500MG TABS, 1 TO 2 Q 4-6 H PRN
     Route: 048
     Dates: start: 20090407
  3. TORADOL [Concomitant]
     Indication: ABDOMINAL PAIN
     Dosage: 60 MG, [TIMES] 1
     Route: 030
     Dates: start: 20090407
  4. NITROFURANTOIN [Concomitant]
     Dosage: 100 MG, 1 BID
     Route: 048
     Dates: start: 20090411
  5. BELLADONNA ALKALOIDS [Concomitant]
     Dosage: UNK
     Dates: start: 20090407, end: 20090414
  6. DARVOCET-N [Concomitant]
     Dosage: 650/100MG, 100 TABLETS THREE TIMES A DAY PRN
     Route: 048
  7. FIORICET W/CODEINE [Concomitant]
     Indication: HEADACHE
     Dosage: 325/50/40 MG 1-2 PO Q 12 HOURS PRN
  8. HYDROCODONE W/APAP [Concomitant]
     Indication: ABDOMINAL PAIN
     Dosage: 5/500MG TABS, 1 TO 2 Q 4-6 H PRN
     Route: 048
     Dates: start: 20090407

REACTIONS (3)
  - Deep vein thrombosis [None]
  - Deep vein thrombosis [None]
  - Cholecystitis chronic [None]
